FAERS Safety Report 17291262 (Version 3)
Quarter: 2020Q1

REPORT INFORMATION
  Report Type: Spontaneous
  Country: US (occurrence: US)
  Receive Date: 20200121
  Receipt Date: 20200331
  Transmission Date: 20200409
  Serious: No
  Sender: FDA-Public Use
  Company Number: NVSC2020US012847

PATIENT
  Sex: Male

DRUGS (4)
  1. LENVATINIB [Suspect]
     Active Substance: LENVATINIB
     Dosage: 14 MG, QD (REDUCED ABOUT 2 MONTHS AGO)
     Route: 065
     Dates: start: 20200126
  2. AFINITOR [Suspect]
     Active Substance: EVEROLIMUS
     Indication: RENAL CANCER
     Dosage: 5 MG, QD
     Route: 065
     Dates: start: 20200126
  3. LENVATINIB [Suspect]
     Active Substance: LENVATINIB
     Indication: RENAL CANCER
     Dosage: 18 MG, QD
     Route: 065
  4. LENVATINIB [Suspect]
     Active Substance: LENVATINIB
     Dosage: 14 MG, QD (REDUCED ABOUT 2 MONTHS AGO)
     Route: 048
     Dates: start: 20200126

REACTIONS (4)
  - Dysphonia [Unknown]
  - Nasopharyngitis [Unknown]
  - Hypercholesterolaemia [Not Recovered/Not Resolved]
  - Fatigue [Not Recovered/Not Resolved]
